FAERS Safety Report 4516241-9 (Version None)
Quarter: 2004Q4

REPORT INFORMATION
  Report Type: 
  Country: None (occurrence: None)
  Receive Date: 20041202
  Receipt Date: 20041122
  Transmission Date: 20050328
  Serious: Yes (Death, Hospitalization)
  Sender: FDA-Public Use
  Company Number: JP-BRISTOL-MYERS SQUIBB COMPANY-12776852

PATIENT
  Age: 81 Year
  Sex: Female

DRUGS (11)
  1. PRAVASTATIN [Suspect]
     Route: 048
     Dates: start: 20020729, end: 20041025
  2. DASEN [Concomitant]
     Dates: start: 20020427
  3. PREDONINE [Concomitant]
     Dates: start: 20040427
  4. LASIX [Concomitant]
     Dates: start: 20020427
  5. ALDACTONE-A [Concomitant]
     Dates: start: 20020427
  6. LANSOPRAZOLE [Concomitant]
     Dates: start: 20031217
  7. ITOROL [Concomitant]
     Dates: start: 20031217
  8. RHYTHMY [Concomitant]
     Dates: start: 20031217
  9. HALCION [Concomitant]
     Dates: start: 20031217
  10. LOXONIN [Concomitant]
     Dates: start: 20031217
  11. HOKUNALIN [Concomitant]
     Dates: start: 20031217

REACTIONS (2)
  - CARDIAC FAILURE CONGESTIVE [None]
  - RHABDOMYOLYSIS [None]
